FAERS Safety Report 6131517-X (Version None)
Quarter: 2009Q1

REPORT INFORMATION
  Report Type: 
  Country: None (occurrence: None)
  Receive Date: 20090325
  Receipt Date: 20080915
  Transmission Date: 20090719
  Serious: Yes (Other)
  Sender: FDA-Public Use
  Company Number: US-BRISTOL-MYERS SQUIBB COMPANY-14335947

PATIENT
  Age: 4 Decade

DRUGS (4)
  1. ERBITUX [Suspect]
     Dosage: 1 DF = 21CC INFUSED.
  2. BENADRYL [Concomitant]
     Indication: PREMEDICATION
  3. DECADRON [Concomitant]
     Indication: PREMEDICATION
  4. ATROPINE [Concomitant]
     Indication: PREMEDICATION

REACTIONS (7)
  - COUGH [None]
  - DYSKINESIA [None]
  - PARAESTHESIA [None]
  - PRURITUS GENERALISED [None]
  - SWOLLEN TONGUE [None]
  - URTICARIA [None]
  - WHEEZING [None]
